FAERS Safety Report 25573156 (Version 6)
Quarter: 2025Q3

REPORT INFORMATION
  Report Type: Spontaneous
  Country: US (occurrence: US)
  Receive Date: 20250717
  Receipt Date: 20250829
  Transmission Date: 20251020
  Serious: No
  Sender: PFIZER
  Company Number: US-PFIZER INC-PV202500085831

PATIENT
  Age: 68 Year
  Sex: Female

DRUGS (2)
  1. IBRANCE [Suspect]
     Active Substance: PALBOCICLIB
  2. IBRANCE [Suspect]
     Active Substance: PALBOCICLIB

REACTIONS (15)
  - Pain in jaw [Unknown]
  - Hypersensitivity [Unknown]
  - Taste disorder [Unknown]
  - Cough [Recovered/Resolved]
  - Dry mouth [Unknown]
  - Full blood count abnormal [Unknown]
  - Red blood cell count decreased [Unknown]
  - Tooth disorder [Unknown]
  - Hot flush [Unknown]
  - White blood cell count decreased [Recovered/Resolved]
  - Nasopharyngitis [Recovered/Resolved]
  - Fatigue [Recovered/Resolved]
  - Diarrhoea [Recovered/Resolved]
  - Alopecia [Unknown]
  - Alopecia [Unknown]

NARRATIVE: CASE EVENT DATE: 20250811
